FAERS Safety Report 5745292-1 (Version None)
Quarter: 2008Q2

REPORT INFORMATION
  Report Type: 
  Country: None (occurrence: None)
  Receive Date: 20080521
  Receipt Date: 20080512
  Transmission Date: 20081010
  Serious: Yes (Hospitalization, Other)
  Sender: FDA-Public Use
  Company Number: US-JNJFOC-20080503642

PATIENT
  Sex: Female
  Weight: 77.11 kg

DRUGS (3)
  1. MOTRIN [Suspect]
     Route: 048
  2. MOTRIN [Suspect]
     Indication: NECK PAIN
     Route: 048
  3. SHAKLEE NATURAL VITAMINS [Concomitant]
     Route: 048

REACTIONS (10)
  - ACTIVITIES OF DAILY LIVING IMPAIRED [None]
  - GAIT DISTURBANCE [None]
  - HEADACHE [None]
  - HYPOAESTHESIA [None]
  - INSOMNIA [None]
  - LUNG DISORDER [None]
  - MALAISE [None]
  - NASAL CONGESTION [None]
  - PAIN [None]
  - RHINORRHOEA [None]
